FAERS Safety Report 9064027 (Version 2)
Quarter: 2013Q1

REPORT INFORMATION
  Report Type: Spontaneous
  Country: US (occurrence: US)
  Receive Date: 20130131
  Receipt Date: 20130219
  Transmission Date: 20140127
  Serious: Yes (Other)
  Sender: FDA-Public Use
  Company Number: US-PFIZER INC-2013036941

PATIENT
  Age: 53 Year
  Sex: Female
  Weight: 92.97 kg

DRUGS (7)
  1. TRAMADOL HCL [Suspect]
     Indication: PAIN
     Dosage: 100 MG (50 MG X 2) TABLET, 3X/DAY
     Route: 048
  2. IBUPROFEN [Suspect]
     Indication: PAIN
     Dosage: 800 MG, 3X/DAY
  3. LYRICA [Suspect]
     Indication: FIBROMYALGIA
     Dosage: 150 MG, 2X/DAY
     Dates: start: 2012, end: 201212
  4. CELEBREX [Suspect]
     Indication: FIBROMYALGIA
     Dosage: UNK
  5. CYMBALTA [Suspect]
     Indication: FIBROMYALGIA
     Dosage: UNK
  6. PRILOSEC [Concomitant]
     Dosage: UNK
  7. CLARITHROMYCIN [Concomitant]
     Dosage: UNK

REACTIONS (5)
  - Exostosis [Unknown]
  - Arthritis [Unknown]
  - Pain [Not Recovered/Not Resolved]
  - Drug ineffective [Unknown]
  - Expired drug administered [Unknown]
